FAERS Safety Report 23385757 (Version 1)
Quarter: 2024Q1

REPORT INFORMATION
  Report Type: Spontaneous
  Country: US (occurrence: US)
  Receive Date: 20240110
  Receipt Date: 20240110
  Transmission Date: 20240410
  Serious: No
  Sender: FDA-Public Use
  Company Number: US-ELI_LILLY_AND_COMPANY-US202401003323

PATIENT
  Sex: Male

DRUGS (1)
  1. MOUNJARO [Suspect]
     Active Substance: TIRZEPATIDE
     Indication: Product used for unknown indication
     Dosage: 2.5 MG, UNKNOWN
     Route: 058
     Dates: start: 202312

REACTIONS (6)
  - Hypotension [Recovered/Resolved]
  - Dizziness [Recovered/Resolved]
  - Eructation [Recovered/Resolved]
  - Diarrhoea [Recovered/Resolved]
  - Decreased appetite [Unknown]
  - Flatulence [Recovered/Resolved]
